FAERS Safety Report 14768756 (Version 1)
Quarter: 2018Q2

REPORT INFORMATION
  Report Type: Report from Study
  Country: US (occurrence: US)
  Receive Date: 20180417
  Receipt Date: 20180417
  Transmission Date: 20180711
  Serious: Yes (Hospitalization, Other)
  Sender: FDA-Public Use
  Company Number: US-ROCHE-2010398

PATIENT
  Age: 50 Year
  Sex: Female
  Weight: 81 kg

DRUGS (3)
  1. ATEZOLIZUMAB. [Suspect]
     Active Substance: ATEZOLIZUMAB
     Indication: CERVIX CANCER METASTATIC
     Dosage: 1200 MG IV OVER 60 MINUTES ON DAY 1?MOST RECENT DOSE ON 29/SEP/2017?TOTAL DOSE ADMINISTERED THIS COU
     Route: 042
     Dates: start: 20170705
  2. BEVACIZUMAB. [Suspect]
     Active Substance: BEVACIZUMAB
     Dosage: STARTED BEVACIZUMAB MAINTENANCE ON 02/DEC/2016
     Route: 042
     Dates: start: 201607, end: 201705
  3. BEVACIZUMAB. [Suspect]
     Active Substance: BEVACIZUMAB
     Indication: CERVIX CANCER METASTATIC
     Dosage: 15 MG/KG IV OVER 90 MINUTES ON DAY 1?MOST RECENT DOSE ON 29/SEP/2017?TOTAL DOSE ADMINISTERED THIS CO
     Route: 042
     Dates: start: 20170705, end: 20171012

REACTIONS (10)
  - International normalised ratio increased [Unknown]
  - Activated partial thromboplastin time prolonged [Unknown]
  - Hyperglycaemia [Unknown]
  - Hypertension [Recovered/Resolved]
  - Anaemia [Unknown]
  - Cerebrovascular accident [Unknown]
  - Troponin I increased [Recovered/Resolved]
  - Dizziness [Recovered/Resolved]
  - Lung infection [Unknown]
  - Embolism [Not Recovered/Not Resolved]

NARRATIVE: CASE EVENT DATE: 20171109
